FAERS Safety Report 17125631 (Version 1)
Quarter: 2019Q4

REPORT INFORMATION
  Report Type: Spontaneous
  Country: US (occurrence: US)
  Receive Date: 20191208
  Receipt Date: 20191208
  Transmission Date: 20200122
  Serious: Yes (Other)
  Sender: FDA-Public Use
  Company Number: NVSC2019US057049

PATIENT
  Age: 10 Year
  Sex: Male

DRUGS (2)
  1. PAZOPANIB [Suspect]
     Active Substance: PAZOPANIB
     Indication: ANGIOSARCOMA
     Route: 065
  2. PAZOPANIB [Suspect]
     Active Substance: PAZOPANIB
     Dosage: UNK, DOSE REDUCED TO 25% OF INITIAL DOSE
     Route: 065

REACTIONS (4)
  - Ejection fraction decreased [Unknown]
  - Acute kidney injury [Unknown]
  - Proteinuria [Unknown]
  - Bone marrow failure [Unknown]
